FAERS Safety Report 4309310-X (Version None)
Quarter: 2004Q1

REPORT INFORMATION
  Report Type: 
  Country: None (occurrence: None)
  Receive Date: 20040302
  Receipt Date: 20040227
  Transmission Date: 20041129
  Serious: Yes (Other)
  Sender: FDA-Public Use
  Company Number: US-GLAXOSMITHKLINE-A0500363A

PATIENT
  Age: 43 Year
  Sex: Female

DRUGS (4)
  1. LAMICTAL [Suspect]
     Indication: BIPOLAR DISORDER
     Route: 048
  2. FLUOXETINE [Concomitant]
     Dosage: 40MG PER DAY
  3. SEROQUEL [Concomitant]
  4. AMBIEN [Concomitant]

REACTIONS (1)
  - HAIRY CELL LEUKAEMIA [None]
